FAERS Safety Report 17143430 (Version 1)
Quarter: 2019Q4

REPORT INFORMATION
  Report Type: Spontaneous
  Country: US (occurrence: US)
  Receive Date: 20191211
  Receipt Date: 20191211
  Transmission Date: 20200122
  Serious: Yes (Other)
  Sender: FDA-Public Use
  Company Number: US-AMERICAN REGENT INC-20190288

PATIENT
  Age: 87 Year
  Sex: Female
  Weight: 48 kg

DRUGS (3)
  1. VENOFER [Suspect]
     Active Substance: IRON SUCROSE
     Dosage: 100 MG
     Dates: start: 20181121
  2. MIRCERA [Suspect]
     Active Substance: METHOXY POLYETHYLENE GLYCOL-EPOETIN BETA
     Dosage: 75 MCG, 1 IN 2 WK
     Dates: start: 20181121
  3. VENOFER [Suspect]
     Active Substance: IRON SUCROSE
     Indication: IRON DEFICIENCY
     Dosage: 100 MG, EVERY TREATMENT
     Dates: start: 20181115

REACTIONS (2)
  - Chest pain [Unknown]
  - Pruritus [Unknown]

NARRATIVE: CASE EVENT DATE: 20181121
